FAERS Safety Report 5372830-3 (Version None)
Quarter: 2007Q2

REPORT INFORMATION
  Report Type: 
  Country: None (occurrence: None)
  Receive Date: 20070626
  Receipt Date: 20070612
  Transmission Date: 20071010
  Serious: Yes (Hospitalization)
  Sender: FDA-Public Use
  Company Number: 2007S1005225

PATIENT
  Age: 36 Year
  Sex: Female

DRUGS (4)
  1. PENTASA [Suspect]
     Indication: CROHN'S DISEASE
  2. LEVOTHYROXINE SODIUM [Suspect]
     Indication: HYPOTHYROIDISM
     Dosage: ; ORAL
     Route: 048
  3. REMICADE [Suspect]
     Indication: CROHN'S DISEASE
     Dosage: 100 MG; ; INTRAVENOUS
     Route: 042
     Dates: start: 20060701
  4. METHOTREXATE [Suspect]
     Indication: CROHN'S DISEASE
     Dates: start: 20051101

REACTIONS (8)
  - ALANINE AMINOTRANSFERASE INCREASED [None]
  - ARTHRALGIA [None]
  - CHEST PAIN [None]
  - HEPATOMEGALY [None]
  - PERICARDIAL EFFUSION [None]
  - PERICARDITIS [None]
  - PLEURAL EFFUSION [None]
  - RIGHT VENTRICULAR FAILURE [None]
